FAERS Safety Report 7058091-8 (Version None)
Quarter: 2010Q4

REPORT INFORMATION
  Report Type: 
  Country: None (occurrence: None)
  Receive Date: 20101022
  Receipt Date: 20101020
  Transmission Date: 20110411
  Serious: Yes (Death, Hospitalization)
  Sender: FDA-Public Use
  Company Number: IN-BAYER-200827480GPV

PATIENT
  Age: 39 Year
  Sex: Female
  Weight: 64 kg

DRUGS (8)
  1. SORAFENIB [Suspect]
     Indication: BREAST CANCER METASTATIC
     Dosage: TOTAL DAILY DOSE: 800 MG  UNIT DOSE: 200 MG
     Route: 048
     Dates: start: 20080515, end: 20080628
  2. TAXOL [Suspect]
     Indication: BREAST CANCER METASTATIC
     Dosage: UNIT DOSE: 90 MG/M2
     Route: 042
     Dates: start: 20080515, end: 20080515
  3. TAXOL [Suspect]
     Dosage: UNIT DOSE: 90 MG/M2
     Route: 042
     Dates: start: 20080522, end: 20080522
  4. TAXOL [Suspect]
     Dosage: UNIT DOSE: 90 MG/M2
     Route: 042
     Dates: start: 20080529, end: 20080529
  5. TAXOL [Suspect]
     Dates: end: 20080626
  6. TAXOL [Suspect]
     Dosage: UNIT DOSE: 90 MG/M2
     Route: 042
     Dates: start: 20080612, end: 20080612
  7. TAXOL [Suspect]
     Dosage: UNIT DOSE: 90 MG/M2
     Route: 042
     Dates: start: 20080619, end: 20080619
  8. WARFARIN SODIUM [Concomitant]
     Indication: ANTICOAGULANT THERAPY
     Route: 048

REACTIONS (2)
  - HEPATIC FUNCTION ABNORMAL [None]
  - MENINGITIS [None]
